FAERS Safety Report 10222534 (Version 1)
Quarter: 2014Q2

REPORT INFORMATION
  Report Type: Report from Study
  Country: HU (occurrence: HU)
  Receive Date: 20140606
  Receipt Date: 20140606
  Transmission Date: 20141212
  Serious: Yes (Death)
  Sender: FDA-Public Use
  Company Number: HU-BAXTER-2014BAX029554

PATIENT
  Sex: 0

DRUGS (3)
  1. ENDOXAN 1G POR OLDATOS INJEKCI?HOZ [Suspect]
     Indication: FACTOR VIII DEFICIENCY
     Route: 065
  2. DEXAMETHASONE [Suspect]
     Indication: FACTOR VIII DEFICIENCY
     Route: 065
  3. RITUXIMAB [Suspect]
     Indication: FACTOR VIII DEFICIENCY
     Route: 065

REACTIONS (1)
  - Death [Fatal]
